FAERS Safety Report 10052046 (Version 1)
Quarter: 2014Q2

REPORT INFORMATION
  Report Type: Spontaneous
  Country: GB (occurrence: GB)
  Receive Date: 20140402
  Receipt Date: 20140402
  Transmission Date: 20141212
  Serious: Yes (Other)
  Sender: FDA-Public Use
  Company Number: PHHY2014GB035679

PATIENT
  Age: 44 Year
  Sex: Female
  Weight: 67.12 kg

DRUGS (4)
  1. METRONIDAZOLE [Suspect]
     Indication: INFECTION
     Dosage: 1 DF, TID
     Route: 048
     Dates: start: 20140306, end: 20140311
  2. LEVOTHYROXINE [Concomitant]
  3. PIZOTIFEN [Concomitant]
  4. MIRENA [Concomitant]

REACTIONS (9)
  - Asthenopia [Recovering/Resolving]
  - Flatulence [Unknown]
  - Neck pain [Recovering/Resolving]
  - Headache [Recovered/Resolved]
  - Decreased appetite [Recovered/Resolved]
  - Diarrhoea [Not Recovered/Not Resolved]
  - Chromaturia [Not Recovered/Not Resolved]
  - Pain in extremity [Not Recovered/Not Resolved]
  - Dysgeusia [Recovered/Resolved]
